FAERS Safety Report 11844169 (Version 1)
Quarter: 2015Q4

REPORT INFORMATION
  Report Type: Spontaneous
  Country: US (occurrence: None)
  Receive Date: 20151216
  Receipt Date: 20151216
  Transmission Date: 20160305
  Serious: No
  Sender: FDA-Public Use
  Company Number: None

PATIENT
  Age: 60 Year
  Sex: Female

DRUGS (11)
  1. SUTENT [Suspect]
     Active Substance: SUNITINIB MALATE
     Indication: PANCREATIC CARCINOMA
     Route: 048
     Dates: start: 201506, end: 20151207
  2. TORSEMIDE. [Concomitant]
     Active Substance: TORSEMIDE
  3. OMEPRAZOLE. [Concomitant]
     Active Substance: OMEPRAZOLE
  4. MULTI-DAY VITAMINS [Concomitant]
     Active Substance: VITAMINS
  5. FOLIC ACID. [Concomitant]
     Active Substance: FOLIC ACID
  6. OXYCODONE [Concomitant]
     Active Substance: OXYCODONE
  7. CYCLOBENZAPR [Concomitant]
  8. AMBIEN [Concomitant]
     Active Substance: ZOLPIDEM TARTRATE
  9. DRAMAMINE [Concomitant]
     Active Substance: DIMENHYDRINATE
  10. TEA [Concomitant]
     Active Substance: TEA LEAF
  11. ALPRAZOLAM. [Concomitant]
     Active Substance: ALPRAZOLAM

REACTIONS (1)
  - Therapy cessation [None]

NARRATIVE: CASE EVENT DATE: 20151207
